FAERS Safety Report 5982469-4 (Version None)
Quarter: 2008Q4

REPORT INFORMATION
  Report Type: 
  Country: None (occurrence: None)
  Receive Date: 20081208
  Receipt Date: 20080228
  Transmission Date: 20090506
  Serious: No
  Sender: FDA-Public Use
  Company Number: US-AMGEN-KDL267698

PATIENT
  Sex: Female

DRUGS (3)
  1. ENBREL [Suspect]
     Indication: RHEUMATOID ARTHRITIS
     Route: 058
     Dates: start: 20070801
  2. HYDROXYCHLOROQUINE SULFATE [Concomitant]
     Route: 048
     Dates: start: 20070701
  3. METHOTREXATE [Concomitant]
     Route: 048
     Dates: start: 20070701

REACTIONS (7)
  - CONTUSION [None]
  - DRUG INEFFECTIVE [None]
  - FOREIGN BODY TRAUMA [None]
  - INJECTION SITE DISCOLOURATION [None]
  - INJECTION SITE IRRITATION [None]
  - INJECTION SITE PRURITUS [None]
  - TENDERNESS [None]
